FAERS Safety Report 7265293-4 (Version None)
Quarter: 2011Q1

REPORT INFORMATION
  Report Type: 
  Country: None (occurrence: None)
  Receive Date: 20110131
  Receipt Date: 20110126
  Transmission Date: 20110831
  Serious: Yes (Hospitalization, Other)
  Sender: FDA-Public Use
  Company Number: FR-PFIZER INC-2010055753

PATIENT
  Age: 79 Year
  Sex: Male
  Weight: 75 kg

DRUGS (14)
  1. LYRICA [Suspect]
     Indication: NEURALGIA
     Dosage: 75 MG, 1X/DAY
     Route: 048
     Dates: start: 20100426, end: 20100428
  2. SINEMET [Concomitant]
     Dosage: 150/30 MG IN 3 INTAKES
     Route: 048
  3. DEROXAT [Concomitant]
     Indication: DEPRESSION
     Dosage: 20 MG, 1X/DAY
     Route: 048
  4. TIAPRIDAL [Concomitant]
     Dosage: UNK
     Route: 048
  5. LYRICA [Suspect]
     Indication: CERVICAL MYELOPATHY
     Dosage: 75 MG, 2X/DAY
     Route: 048
     Dates: start: 20100429, end: 20100503
  6. MOVICOL [Concomitant]
     Dosage: 2 DF, 1X/DAY
     Route: 048
  7. NOROXIN [Concomitant]
     Dosage: 400 MG, 2X/DAY
  8. DIFRAREL [Concomitant]
     Dosage: UNK
     Route: 048
  9. RIVOTRIL [Concomitant]
     Dosage: 5 GTT, 1X/DAY
     Route: 048
  10. MEPRONIZINE [Concomitant]
     Indication: PARKINSONISM
     Dosage: UNK
     Route: 048
  11. CHRONADALATE [Concomitant]
     Indication: HYPERTENSION
     Dosage: 30 MG, 1X/DAY
     Route: 048
  12. SERESTA [Concomitant]
     Dosage: UNK
     Route: 048
  13. TETRAZEPAM [Concomitant]
     Dosage: UNK
     Route: 048
  14. CELESTONE [Concomitant]
     Dosage: 1 DF, 3X/DAY
     Route: 048

REACTIONS (5)
  - TOXIC EPIDERMAL NECROLYSIS [None]
  - URINARY RETENTION [None]
  - DERMATITIS BULLOUS [None]
  - RASH [None]
  - PEMPHIGOID [None]
